FAERS Safety Report 10398120 (Version 2)
Quarter: 2014Q4

REPORT INFORMATION
  Report Type: Spontaneous
  Country: US (occurrence: US)
  Receive Date: 20140821
  Receipt Date: 20141006
  Transmission Date: 20150528
  Serious: Yes (Other)
  Sender: FDA-Public Use
  Company Number: US-AMGEN INC.-USASP2014062936

PATIENT
  Age: 54 Year
  Sex: Male

DRUGS (1)
  1. ENBREL [Suspect]
     Active Substance: ETANERCEPT
     Indication: ANKYLOSING SPONDYLITIS
     Dosage: 50 MG, QWK
     Route: 065
     Dates: start: 20140804, end: 20140908

REACTIONS (8)
  - Cognitive disorder [Recovered/Resolved]
  - Asthenia [Recovered/Resolved]
  - Formication [Not Recovered/Not Resolved]
  - Headache [Recovered/Resolved]
  - Adverse event [Recovered/Resolved]
  - Arthralgia [Not Recovered/Not Resolved]
  - Hordeolum [Recovered/Resolved]
  - Diarrhoea [Recovered/Resolved]

NARRATIVE: CASE EVENT DATE: 20140812
